FAERS Safety Report 12165465 (Version 1)
Quarter: 2016Q1

REPORT INFORMATION
  Report Type: Spontaneous
  Country: BR (occurrence: BR)
  Receive Date: 20160309
  Receipt Date: 20160309
  Transmission Date: 20160526
  Serious: Yes (Hospitalization, Other)
  Sender: FDA-Public Use
  Company Number: BR-ASTRAZENECA-2015SE85172

PATIENT
  Age: 11512 Day
  Sex: Female
  Weight: 82 kg

DRUGS (4)
  1. SYMBICORT [Suspect]
     Active Substance: BUDESONIDE\FORMOTEROL FUMARATE DIHYDRATE
     Indication: ASTHMA
     Dosage: 160/4.5MCG, TWO TIMES A DAY
     Route: 055
     Dates: start: 20150829, end: 201512
  2. SYMBICORT [Suspect]
     Active Substance: BUDESONIDE\FORMOTEROL FUMARATE DIHYDRATE
     Indication: RHINITIS ALLERGIC
     Dosage: 160/4.5MCG, TWO TIMES A DAY
     Route: 055
     Dates: start: 20150829, end: 201512
  3. DESALEX [Concomitant]
     Active Substance: DESLORATADINE
     Indication: ASTHMA
     Route: 048
     Dates: start: 20150829, end: 201512
  4. DESALEX [Concomitant]
     Active Substance: DESLORATADINE
     Indication: RHINITIS ALLERGIC
     Route: 048
     Dates: start: 20150829, end: 201512

REACTIONS (4)
  - Epistaxis [Recovered/Resolved]
  - Premature baby [Recovered/Resolved]
  - Exposure during pregnancy [Recovered/Resolved]
  - Blood pressure increased [Recovered/Resolved]

NARRATIVE: CASE EVENT DATE: 20150829
